FAERS Safety Report 10732037 (Version 2)
Quarter: 2019Q1

REPORT INFORMATION
  Report Type: Other
  Country: US (occurrence: US)
  Receive Date: 20150120
  Receipt Date: 20190220
  Transmission Date: 20190417
  Serious: Yes (Other)
  Sender: FDA-Public Use
  Company Number: US-INVENTIA-000005

PATIENT
  Age: 66 Year
  Sex: Female

DRUGS (1)
  1. BUSPIRONE/BUSPIRONE HYDROCHLORIDE [Suspect]
     Active Substance: BUSPIRONE HYDROCHLORIDE
     Indication: PRODUCT USED FOR UNKNOWN INDICATION

REACTIONS (7)
  - Somnolence [Unknown]
  - Abnormal behaviour [Unknown]
  - Drug abuse [Unknown]
  - Syncope [Unknown]
  - Agitation [Unknown]
  - Hallucination, visual [Unknown]
  - Incorrect route of product administration [Unknown]
